FAERS Safety Report 21783331 (Version 2)
Quarter: 2022Q4

REPORT INFORMATION
  Report Type: Spontaneous
  Country: US (occurrence: US)
  Receive Date: 20221227
  Receipt Date: 20221230
  Transmission Date: 20230112
  Serious: No
  Sender: FDA-Public Use
  Company Number: US-PFIZER INC-202201392529

PATIENT
  Age: 74 Year
  Sex: Female
  Weight: 62.6 kg

DRUGS (5)
  1. PAXLOVID [Suspect]
     Active Substance: NIRMATRELVIR\RITONAVIR
     Indication: COVID-19 treatment
     Dosage: [PF-07321332 300 MG]/[RITONAVIR 100 MG]; 2X/DAY
     Dates: start: 20221221
  2. DILTIAZEM [Concomitant]
     Active Substance: DILTIAZEM
     Indication: Supraventricular extrasystoles
     Dosage: 240 MG
  3. DILTIAZEM [Concomitant]
     Active Substance: DILTIAZEM
     Dosage: 120 MG
     Dates: start: 20221222
  4. ROSUVASTATIN [Concomitant]
     Active Substance: ROSUVASTATIN
     Indication: Blood cholesterol abnormal
     Dosage: UNK, 2X/WEEK
  5. LOSARTAN [Concomitant]
     Active Substance: LOSARTAN
     Indication: Hypertension
     Dosage: UNK

REACTIONS (1)
  - Illness [Unknown]

NARRATIVE: CASE EVENT DATE: 20221221
